FAERS Safety Report 20127208 (Version 1)
Quarter: 2021Q4

REPORT INFORMATION
  Report Type: Spontaneous
  Country: CA (occurrence: CA)
  Receive Date: 20211129
  Receipt Date: 20211129
  Transmission Date: 20220303
  Serious: Yes (Other)
  Sender: FDA-Public Use
  Company Number: CA-SA-SAC20211124000842

PATIENT
  Sex: Female

DRUGS (5)
  1. LEFLUNOMIDE [Suspect]
     Active Substance: LEFLUNOMIDE
     Indication: Juvenile idiopathic arthritis
     Dosage: UNK UNK, QD
     Route: 065
  2. METHOTREXATE [Suspect]
     Active Substance: METHOTREXATE
     Indication: Juvenile idiopathic arthritis
     Dosage: UNK UNK, QD
     Route: 058
  3. CIPROFLOXACIN [Suspect]
     Active Substance: CIPROFLOXACIN
     Indication: Juvenile idiopathic arthritis
     Dosage: UNK
     Route: 065
  4. ENBREL [Concomitant]
     Active Substance: ETANERCEPT
     Dosage: UNK UNK, QW
     Route: 058
  5. NAPROXEN [Concomitant]
     Active Substance: NAPROXEN
     Dosage: FREQUENCY: EVERY 1 WEEK
     Route: 058

REACTIONS (10)
  - Juvenile idiopathic arthritis [Unknown]
  - Gastrointestinal disorder [Unknown]
  - Stress [Unknown]
  - Nodule [Unknown]
  - Swelling [Unknown]
  - Pyrexia [Unknown]
  - Cough [Unknown]
  - Drug hypersensitivity [Unknown]
  - Off label use [Unknown]
  - Drug ineffective [Unknown]
